FAERS Safety Report 9770158 (Version 4)
Quarter: 2014Q2

REPORT INFORMATION
  Report Type: Report from Study
  Country: CA (occurrence: CA)
  Receive Date: 20131218
  Receipt Date: 20140502
  Transmission Date: 20141212
  Serious: Yes (Death, Hospitalization, Other)
  Sender: FDA-Public Use
  Company Number: CA-ABBVIE-13P-028-1167565-00

PATIENT
  Age: 26 Year
  Sex: Female
  Weight: 81.72 kg

DRUGS (6)
  1. HUMIRA [Suspect]
     Indication: CROHN^S DISEASE
     Route: 058
     Dates: start: 20120103
  2. HUMIRA [Suspect]
     Dates: end: 201403
  3. IMURAN [Concomitant]
     Indication: CROHN^S DISEASE
     Route: 048
  4. LOSEC [Concomitant]
     Indication: GASTROOESOPHAGEAL REFLUX DISEASE
     Route: 048
  5. VENLAFAXINE [Concomitant]
     Indication: DEPRESSION
     Route: 048
  6. QUETIAPINE [Concomitant]
     Indication: DEPRESSION
     Route: 048

REACTIONS (16)
  - Respiratory distress [Fatal]
  - Cardiac arrest [Fatal]
  - Hypotension [Unknown]
  - Cellulitis [Not Recovered/Not Resolved]
  - Sepsis [Not Recovered/Not Resolved]
  - Erythema [Unknown]
  - Rash [Unknown]
  - Oedema [Unknown]
  - Pyrexia [Unknown]
  - Tachycardia [Unknown]
  - Skin infection [Not Recovered/Not Resolved]
  - Abscess sterile [Unknown]
  - Pyoderma gangrenosum [Unknown]
  - Localised intraabdominal fluid collection [Unknown]
  - Dermatitis [Not Recovered/Not Resolved]
  - Skin ulcer [Unknown]
